FAERS Safety Report 6669549-5 (Version None)
Quarter: 2010Q2

REPORT INFORMATION
  Report Type: 
  Country: None (occurrence: None)
  Receive Date: 20100406
  Receipt Date: 20100325
  Transmission Date: 20101027
  Serious: Yes (Other)
  Sender: FDA-Public Use
  Company Number: JP-PFIZER INC-2010040277

PATIENT
  Age: 33 Year
  Sex: Female

DRUGS (2)
  1. ZITHROMAX [Suspect]
     Indication: PNEUMONIA
     Dosage: 500 MG, 1X/DAY
     Route: 048
     Dates: start: 20100323
  2. PENMALIN [Suspect]
     Indication: PNEUMONIA
     Dosage: 4 G, DAILY
     Route: 042
     Dates: start: 20100323, end: 20100325

REACTIONS (2)
  - GRANULOCYTE COUNT DECREASED [None]
  - WHITE BLOOD CELL COUNT DECREASED [None]
